FAERS Safety Report 7883381-6 (Version None)
Quarter: 2011Q4

REPORT INFORMATION
  Report Type: 
  Country: None (occurrence: None)
  Receive Date: 20111102
  Receipt Date: 20111102
  Transmission Date: 20120403
  Serious: Yes (Hospitalization)
  Sender: FDA-Public Use
  Company Number: None

PATIENT
  Sex: Male
  Weight: 79.378 kg

DRUGS (2)
  1. CYCLOBENZAPRINE [Suspect]
     Indication: NECK PAIN
     Dosage: 10MG
     Route: 048
     Dates: start: 20110912, end: 20110919
  2. CYCLOBENZAPRINE [Suspect]
     Indication: MUSCLE SPASMS
     Dosage: 10MG
     Route: 048
     Dates: start: 20110912, end: 20110919

REACTIONS (4)
  - TONGUE DISORDER [None]
  - THALAMIC INFARCTION [None]
  - BLOOD PRESSURE INCREASED [None]
  - APRAXIA [None]
